FAERS Safety Report 10084277 (Version 1)
Quarter: 2014Q2

REPORT INFORMATION
  Report Type: Spontaneous
  Country: CA (occurrence: CA)
  Receive Date: 20140417
  Receipt Date: 20140417
  Transmission Date: 20141212
  Serious: Yes (Other)
  Sender: FDA-Public Use
  Company Number: CA-PFIZER INC-2014104924

PATIENT
  Age: 32 Year
  Sex: Female

DRUGS (3)
  1. LIOTHYRONINE SODIUM [Suspect]
     Dosage: 0.125 MG, 1X/DAY
  2. THYROXINE [Suspect]
     Dosage: 0.1 MG, UNK
  3. THYROXINE [Suspect]
     Dosage: 0.5 MG, 1X/DAY

REACTIONS (3)
  - Asthenia [Unknown]
  - Hyperprolactinaemia [Unknown]
  - Pituitary hyperplasia [Unknown]
